FAERS Safety Report 5524105-7 (Version None)
Quarter: 2007Q4

REPORT INFORMATION
  Report Type: 
  Country: None (occurrence: None)
  Receive Date: 20071121
  Receipt Date: 20071119
  Transmission Date: 20080405
  Serious: Yes (Other)
  Sender: FDA-Public Use
  Company Number: JP-ROXANE LABORATORIES, INC-2007-DE-06823GD

PATIENT
  Age: 28 Year
  Sex: Male

DRUGS (7)
  1. RANITIDINE HCL [Suspect]
     Indication: DUODENAL ULCER
  2. LANSOPRAZOLE [Suspect]
     Indication: DUODENAL ULCER
  3. LANSOPRAZOLE [Suspect]
     Indication: HELICOBACTER INFECTION
  4. CLARITHROMYCIN [Suspect]
     Indication: DUODENAL ULCER
  5. CLARITHROMYCIN [Suspect]
     Indication: HELICOBACTER INFECTION
  6. AMOXICILLIN [Suspect]
     Indication: DUODENAL ULCER
  7. AMOXICILLIN [Suspect]
     Indication: HELICOBACTER INFECTION

REACTIONS (1)
  - DRUG INEFFECTIVE [None]
